FAERS Safety Report 20578952 (Version 1)
Quarter: 2022Q1

REPORT INFORMATION
  Report Type: Spontaneous
  Country: PT (occurrence: PT)
  Receive Date: 20220310
  Receipt Date: 20220310
  Transmission Date: 20220423
  Serious: Yes (Other)
  Sender: FDA-Public Use
  Company Number: PT-ADMA BIOLOGICS INC.-PT-2022ADM000005

PATIENT
  Age: 17 Year
  Sex: Female

DRUGS (3)
  1. HUMAN IMMUNOGLOBULIN G [Suspect]
     Active Substance: HUMAN IMMUNOGLOBULIN G
     Indication: Immunodeficiency common variable
     Dosage: 0.7 MG/KG EVERY 4 WEEKS
     Route: 042
     Dates: start: 201805, end: 202006
  2. BUDESONIDE [Suspect]
     Active Substance: BUDESONIDE
     Indication: Iron deficiency anaemia
     Dosage: UNK
     Dates: start: 201805
  3. IRON [Concomitant]
     Active Substance: IRON
     Indication: Iron deficiency anaemia
     Dosage: UNK
     Route: 048

REACTIONS (3)
  - Tubulointerstitial nephritis [Recovering/Resolving]
  - Colitis microscopic [Unknown]
  - Gastrointestinal disorder [Unknown]

NARRATIVE: CASE EVENT DATE: 20200101
